FAERS Safety Report 5126559-7 (Version None)
Quarter: 2006Q4

REPORT INFORMATION
  Report Type: 
  Country: None (occurrence: None)
  Receive Date: 20061012
  Receipt Date: 20061012
  Transmission Date: 20070319
  Serious: No
  Sender: FDA-Public Use
  Company Number: None

PATIENT
  Age: 10 Year
  Sex: Male
  Weight: 55.7924 kg

DRUGS (2)
  1. ABILIFY [Suspect]
     Indication: ATTENTION DEFICIT/HYPERACTIVITY DISORDER
     Dosage: 7.5MG   TID   PO
     Route: 048
     Dates: start: 20060725, end: 20060918
  2. ABILIFY [Suspect]
     Indication: MAJOR DEPRESSION
     Dosage: 7.5MG   TID   PO
     Route: 048
     Dates: start: 20060725, end: 20060918

REACTIONS (4)
  - HEADACHE [None]
  - STRABISMUS [None]
  - TIC [None]
  - TREMOR [None]
